FAERS Safety Report 11081160 (Version 1)
Quarter: 2015Q2

REPORT INFORMATION
  Report Type: Spontaneous
  Country: US (occurrence: None)
  Receive Date: 20150424
  Receipt Date: 20150424
  Transmission Date: 20150821
  Serious: Yes (Other)
  Sender: FDA-Public Use
  Company Number: FK201404897

PATIENT

DRUGS (1)
  1. METHOTREXATE FOR INJECTION, USP (METHOTREXATE SODIUM) (METHOTREXATE SODIUM) [Suspect]
     Active Substance: METHOTREXATE SODIUM
     Indication: CENTRAL NERVOUS SYSTEM LYMPHOMA
     Dosage: INTRAVENOUS BOLUS
     Route: 040

REACTIONS (3)
  - Drug level increased [None]
  - Hepatic function abnormal [None]
  - Renal impairment [None]
